FAERS Safety Report 23782663 (Version 1)
Quarter: 2024Q2

REPORT INFORMATION
  Report Type: Report from Study
  Country: US (occurrence: US)
  Receive Date: 20240425
  Receipt Date: 20240425
  Transmission Date: 20240716
  Serious: Yes (Other)
  Sender: FDA-Public Use
  Company Number: US-MYLANLABS-2024M1037415

PATIENT
  Age: 5 Year
  Sex: Male

DRUGS (8)
  1. CARBOPLATIN [Suspect]
     Active Substance: CARBOPLATIN
     Indication: Astrocytoma
     Dosage: UNK
     Route: 065
  2. CARBOPLATIN [Suspect]
     Active Substance: CARBOPLATIN
     Indication: Optic nerve neoplasm
  3. EVEROLIMUS [Suspect]
     Active Substance: EVEROLIMUS
     Indication: Astrocytoma
     Dosage: UNK
     Route: 065
  4. EVEROLIMUS [Suspect]
     Active Substance: EVEROLIMUS
     Indication: Optic nerve neoplasm
  5. TRAMETINIB [Interacting]
     Active Substance: TRAMETINIB
     Indication: Nervous system neoplasm
     Dosage: 0.032 MILLIGRAM/KILOGRAM, QD
     Route: 065
  6. TRAMETINIB [Interacting]
     Active Substance: TRAMETINIB
     Indication: Astrocytoma
  7. VINBLASTINE [Suspect]
     Active Substance: VINBLASTINE
     Indication: Astrocytoma
     Dosage: UNK
     Route: 065
  8. VINBLASTINE [Suspect]
     Active Substance: VINBLASTINE
     Indication: Optic nerve neoplasm

REACTIONS (3)
  - Disease progression [Unknown]
  - Drug ineffective [Unknown]
  - Off label use [Unknown]
